FAERS Safety Report 11587268 (Version 1)
Quarter: 2015Q3

REPORT INFORMATION
  Report Type: Spontaneous
  Country: US (occurrence: US)
  Receive Date: 20150916
  Receipt Date: 20150916
  Transmission Date: 20151125
  Serious: No
  Sender: FDA-Public Use
  Company Number: US-ELI_LILLY_AND_COMPANY-US200802000884

PATIENT
  Sex: Female

DRUGS (2)
  1. NASOCORT [Concomitant]
     Active Substance: BUDESONIDE
     Indication: SINUSITIS
  2. FORTEO [Suspect]
     Active Substance: TERIPARATIDE
     Indication: OSTEOPOROSIS
     Dates: start: 20071106

REACTIONS (8)
  - Sinusitis [Not Recovered/Not Resolved]
  - Constipation [Recovering/Resolving]
  - Candida infection [Recovered/Resolved]
  - Oedema mucosal [Not Recovered/Not Resolved]
  - Respiratory tract infection [Recovered/Resolved]
  - Bronchitis [Recovered/Resolved]
  - Infrequent bowel movements [Recovered/Resolved]
  - Wheezing [Recovered/Resolved]

NARRATIVE: CASE EVENT DATE: 200712
